FAERS Safety Report 20258586 (Version 2)
Quarter: 2022Q3

REPORT INFORMATION
  Report Type: Spontaneous
  Country: US (occurrence: US)
  Receive Date: 20211230
  Receipt Date: 20220909
  Transmission Date: 20221026
  Serious: Yes (Other)
  Sender: FDA-Public Use
  Company Number: US-SA-SAC20211228000256

PATIENT
  Age: 49 Year
  Sex: Female

DRUGS (2)
  1. ZANTAC [Suspect]
     Active Substance: RANITIDINE HYDROCHLORIDE
     Indication: Dyspepsia
     Dosage: 25 MG, QD
     Route: 065
     Dates: start: 199101, end: 201901
  2. RANITIDINE HYDROCHLORIDE [Suspect]
     Active Substance: RANITIDINE HYDROCHLORIDE
     Indication: Dyspepsia

REACTIONS (5)
  - Bladder cancer [Unknown]
  - Renal cancer [Unknown]
  - Skin cancer [Unknown]
  - Small intestine carcinoma [Unknown]
  - Haematological malignancy [Unknown]

NARRATIVE: CASE EVENT DATE: 20130201
